FAERS Safety Report 9638009 (Version 2)
Quarter: 2013Q4

REPORT INFORMATION
  Report Type: Spontaneous
  Country: BR (occurrence: BR)
  Receive Date: 20131022
  Receipt Date: 20131022
  Transmission Date: 20140711
  Serious: Yes (Other)
  Sender: FDA-Public Use
  Company Number: PHHY2013BR088803

PATIENT
  Age: 65 Year
  Sex: Male

DRUGS (4)
  1. RASILEZ AMLO [Suspect]
     Indication: HYPERTENSION
     Dosage: 1 DF,  (ALIS 300 MG, AMLO 10 MG) DAILY IN THE MORNING
     Route: 048
  2. RASILEZ [Suspect]
     Dosage: 300 MG, A DAY
     Route: 048
  3. METFORMIN [Concomitant]
     Indication: DIABETES MELLITUS
     Dosage: 1 OR 2 TABLET DAILY
     Route: 048
  4. INSULIN [Concomitant]
     Indication: DIABETES MELLITUS
     Dosage: 30 U, UNK
     Route: 042

REACTIONS (7)
  - Blood pressure increased [Recovered/Resolved]
  - Dysstasia [Recovered/Resolved]
  - Dizziness [Recovered/Resolved]
  - Asthenia [Recovered/Resolved]
  - Blood cholesterol increased [Unknown]
  - Blood triglycerides increased [Unknown]
  - Cardiovascular disorder [Unknown]
